FAERS Safety Report 8767372 (Version 1)
Quarter: 2012Q4

REPORT INFORMATION
  Report Type: 
  Country: US (occurrence: US)
  Receive Date: 20120904
  Receipt Date: 20120904
  Transmission Date: 20130627
  Serious: No
  Sender: FDA-Public Use
  Company Number: US-ROXANE LABORATORIES, INC.-2012-RO-01733RO

PATIENT
  Age: 67 Year
  Sex: Female

DRUGS (4)
  1. BUPRENORPHINE HYDROCHLORIDE [Suspect]
     Indication: DETOXIFICATION
     Dosage: 6 mg
     Route: 060
  2. SYNTHROID [Concomitant]
     Indication: HYPOTHYROIDISM
  3. ESTRACE [Concomitant]
     Indication: HORMONE REPLACEMENT THERAPY
  4. IRBESARTAN [Concomitant]
     Indication: HYPERTENSION

REACTIONS (4)
  - Muscle spasms [Not Recovered/Not Resolved]
  - Nausea [Not Recovered/Not Resolved]
  - Balance disorder [Not Recovered/Not Resolved]
  - Mental impairment [Not Recovered/Not Resolved]
